FAERS Safety Report 12462755 (Version 2)
Quarter: 2016Q2

REPORT INFORMATION
  Report Type: Spontaneous
  Country: LB (occurrence: LB)
  Receive Date: 20160614
  Receipt Date: 20160629
  Transmission Date: 20160815
  Serious: Yes (Death, Other)
  Sender: FDA-Public Use
  Company Number: LB-UCBSA-2016021946

PATIENT
  Sex: Female

DRUGS (4)
  1. AMLOR [Concomitant]
     Active Substance: AMLODIPINE BESYLATE
     Indication: BLOOD PRESSURE INCREASED
     Dosage: 5 MG, UNK
  2. GLUCOPHAGE [Concomitant]
     Active Substance: METFORMIN HYDROCHLORIDE
     Indication: BLOOD PRESSURE INCREASED
     Dosage: 850 MG, UNK
  3. CIMZIA [Suspect]
     Active Substance: CERTOLIZUMAB PEGOL
     Indication: RHEUMATOID ARTHRITIS
     Dosage: 200 MG, EV 2 WEEKS(LOADING DOSE), USED 8 DOSES
     Route: 058
     Dates: start: 201511, end: 20160501
  4. AMARYL [Concomitant]
     Active Substance: GLIMEPIRIDE
     Indication: BLOOD PRESSURE INCREASED
     Dosage: 2 MG, UNK

REACTIONS (1)
  - Cerebrovascular accident [Fatal]
